FAERS Safety Report 5384949-1 (Version None)
Quarter: 2007Q3

REPORT INFORMATION
  Report Type: 
  Country: None (occurrence: None)
  Receive Date: 20070709
  Receipt Date: 20070622
  Transmission Date: 20080115
  Serious: Yes (Hospitalization)
  Sender: FDA-Public Use
  Company Number: 8015450

PATIENT
  Age: 33 Year
  Sex: Female

DRUGS (7)
  1. KEPPRA [Suspect]
     Indication: GRAND MAL CONVULSION
     Dosage: 1000 MG/D; PO
     Route: 048
     Dates: start: 20050804, end: 20050801
  2. KEPPRA [Suspect]
     Indication: GRAND MAL CONVULSION
     Dosage: 500 MG/D; PO
     Route: 048
     Dates: start: 20050808
  3. PHENYTOIN [Concomitant]
  4. PRENATAL VITAMINS [Concomitant]
  5. CALCIUM CHLORIDE [Concomitant]
  6. IRON [Concomitant]
  7. FOLIC ACID [Concomitant]

REACTIONS (7)
  - CAESAREAN SECTION [None]
  - DRUG EXPOSURE DURING PREGNANCY [None]
  - FALL [None]
  - GRAND MAL CONVULSION [None]
  - LABOUR COMPLICATION [None]
  - LOWER LIMB FRACTURE [None]
  - VAGINAL HAEMORRHAGE [None]
